FAERS Safety Report 19222325 (Version 1)
Quarter: 2021Q2

REPORT INFORMATION
  Report Type: Spontaneous
  Country: US (occurrence: US)
  Receive Date: 20210506
  Receipt Date: 20210506
  Transmission Date: 20210717
  Serious: No
  Sender: FDA-Public Use
  Company Number: None

PATIENT
  Age: 47 Year
  Sex: Female
  Weight: 96 kg

DRUGS (1)
  1. ARIPIPRAZOLE (ARIPIPRAZOLE 20MG TAB) [Suspect]
     Active Substance: ARIPIPRAZOLE
     Indication: BIPOLAR I DISORDER
     Route: 048
     Dates: start: 20120308, end: 20210322

REACTIONS (1)
  - Seizure [None]

NARRATIVE: CASE EVENT DATE: 20200923
